FAERS Safety Report 8890993 (Version 8)
Quarter: 2013Q3

REPORT INFORMATION
  Report Type: Spontaneous
  Country: US (occurrence: US)
  Receive Date: 20121107
  Receipt Date: 20130923
  Transmission Date: 20140515
  Serious: Yes (Hospitalization, Disabling, Other)
  Sender: FDA-Public Use
  Company Number: US-009507513-1210USA012383

PATIENT
  Sex: Female
  Weight: 63.49 kg

DRUGS (10)
  1. FOSAMAX [Suspect]
     Indication: OSTEOPOROSIS
     Dosage: 70 MG,QW
     Route: 048
     Dates: start: 199601, end: 200602
  2. FOSAMAX [Suspect]
     Indication: ARTHRITIS
  3. FOSAMAX PLUS D [Suspect]
     Indication: OSTEOPOROSIS
     Dosage: 70 MG, UNK
     Route: 048
     Dates: start: 200602, end: 200811
  4. FOSAMAX PLUS D [Suspect]
     Indication: ARTHRITIS
  5. BONIVA [Suspect]
     Indication: OSTEOPOROSIS
     Dosage: 150 MG, UNK
     Route: 048
     Dates: start: 200902, end: 201002
  6. BONIVA [Suspect]
     Indication: ARTHRITIS
  7. ALENDRONATE SODIUM [Suspect]
     Indication: OSTEOPOROSIS
     Dosage: 70 MG, QW
     Route: 048
     Dates: start: 20100215, end: 201012
  8. ALENDRONATE SODIUM [Suspect]
     Indication: ARTHRITIS
  9. PLAQUENIL [Concomitant]
     Indication: RHEUMATOID ARTHRITIS
     Dosage: UNK
     Dates: start: 1993
  10. PIROXICAM [Concomitant]
     Indication: RHEUMATOID ARTHRITIS
     Dosage: UNK
     Dates: start: 2008

REACTIONS (20)
  - Open reduction of fracture [Unknown]
  - Fall [Unknown]
  - Low turnover osteopathy [Not Recovered/Not Resolved]
  - Femur fracture [Not Recovered/Not Resolved]
  - Hypothyroidism [Not Recovered/Not Resolved]
  - Tooth extraction [Unknown]
  - Dental implantation [Unknown]
  - Foot fracture [Unknown]
  - Foot deformity [Unknown]
  - Osteopenia [Unknown]
  - Undifferentiated connective tissue disease [Unknown]
  - Sciatica [Unknown]
  - Dry mouth [Unknown]
  - Dental caries [Unknown]
  - Calcinosis [Unknown]
  - Osteoarthritis [Unknown]
  - Adverse event [Unknown]
  - Off label use [Unknown]
  - Pain in extremity [Unknown]
  - Constipation [Unknown]
